FAERS Safety Report 24031827 (Version 1)
Quarter: 2024Q2

REPORT INFORMATION
  Report Type: Spontaneous
  Country: IT (occurrence: IT)
  Receive Date: 20240629
  Receipt Date: 20240629
  Transmission Date: 20240716
  Serious: Yes (Other)
  Sender: FDA-Public Use
  Company Number: IT-TAKEDA-2024TUS063949

PATIENT
  Sex: Male

DRUGS (1)
  1. FRUQUINTINIB [Suspect]
     Active Substance: FRUQUINTINIB
     Indication: Rectal cancer metastatic
     Dosage: UNK
     Route: 065

REACTIONS (1)
  - Rectal cancer metastatic [Unknown]
